FAERS Safety Report 10083981 (Version 2)
Quarter: 2014Q2

REPORT INFORMATION
  Report Type: Spontaneous
  Country: AU (occurrence: AU)
  Receive Date: 20140417
  Receipt Date: 20140528
  Transmission Date: 20141212
  Serious: Yes (Death, Hospitalization)
  Sender: FDA-Public Use
  Company Number: PHHY2014AU047145

PATIENT
  Age: 66 Year
  Sex: Male

DRUGS (5)
  1. SEEBRI BREEZHALER [Suspect]
     Dosage: UNK UKN, UNK
  2. ONBREZ [Suspect]
     Dosage: UNK UKN, UNK
  3. SERETIDE [Concomitant]
  4. SPIRIVA [Concomitant]
  5. ALVESCO [Concomitant]

REACTIONS (4)
  - Wheezing [Unknown]
  - Labelled drug-drug interaction medication error [Unknown]
  - Right ventricular failure [Fatal]
  - Coma [Recovered/Resolved]
